FAERS Safety Report 9548945 (Version 4)
Quarter: 2014Q4

REPORT INFORMATION
  Report Type: Spontaneous
  Country: JP (occurrence: JP)
  Receive Date: 20130924
  Receipt Date: 20141013
  Transmission Date: 20150529
  Serious: Yes (Hospitalization)
  Sender: FDA-Public Use
  Company Number: PHHY2013JP104469

PATIENT
  Sex: Male

DRUGS (1)
  1. NEORAL [Suspect]
     Active Substance: CYCLOSPORINE
     Indication: NEPHROTIC SYNDROME
     Dosage: UNK
     Route: 048

REACTIONS (13)
  - Nephropathy [Unknown]
  - Immunosuppressant drug level increased [Unknown]
  - Drug ineffective [Unknown]
  - Metabolic alkalosis [Recovered/Resolved]
  - Blood aldosterone increased [Unknown]
  - Disease recurrence [Unknown]
  - Hyperaldosteronism [Unknown]
  - Gastrointestinal hypomotility [Unknown]
  - Hypokalaemia [Recovered/Resolved]
  - Constipation [Unknown]
  - Nephrotic syndrome [Unknown]
  - Renin increased [Unknown]
  - Abdominal pain [Recovered/Resolved]
